FAERS Safety Report 6165595-9 (Version None)
Quarter: 2009Q2

REPORT INFORMATION
  Report Type: 
  Country: None (occurrence: None)
  Receive Date: 20090423
  Receipt Date: 20090415
  Transmission Date: 20091009
  Serious: Yes (Death, Hospitalization)
  Sender: FDA-Public Use
  Company Number: CO-AVENTIS-200912094EU

PATIENT
  Age: 49 Year
  Sex: Male

DRUGS (6)
  1. ENOXAPARIN SODIUM [Suspect]
     Indication: THROMBOSIS PROPHYLAXIS
     Dates: start: 20090309, end: 20090313
  2. PLAVIX [Suspect]
     Indication: PROPHYLAXIS
     Route: 048
     Dates: start: 20090310, end: 20090313
  3. ASPIRIN [Suspect]
     Indication: ANTIPLATELET THERAPY
     Route: 048
     Dates: start: 20090309, end: 20090313
  4. METOPROLOL TARTRATE [Suspect]
     Route: 048
     Dates: start: 20090310, end: 20090313
  5. ENALAPRIL [Suspect]
     Route: 048
     Dates: start: 20090309, end: 20090313
  6. SPIRONOLACTONE [Suspect]
     Route: 048
     Dates: start: 20090311, end: 20090313

REACTIONS (2)
  - CARDIAC ARREST [None]
  - VENTRICULAR FIBRILLATION [None]
